FAERS Safety Report 6469049-1 (Version None)
Quarter: 2009Q4

REPORT INFORMATION
  Report Type: 
  Country: None (occurrence: None)
  Receive Date: 20091203
  Receipt Date: 20091130
  Transmission Date: 20100525
  Serious: Yes (Death)
  Sender: FDA-Public Use
  Company Number: PHEH2009US15845

PATIENT
  Sex: Female

DRUGS (3)
  1. EXJADE [Suspect]
     Dosage: 1250 MG, QD
     Route: 048
  2. HYDROXYUREA [Concomitant]
     Dosage: 1500 M, W, F/ 1000 UG
     Route: 048
  3. FENTANYL [Concomitant]

REACTIONS (3)
  - CIRCULATORY COLLAPSE [None]
  - LOSS OF CONSCIOUSNESS [None]
  - UNRESPONSIVE TO STIMULI [None]
